FAERS Safety Report 4943563-X (Version None)
Quarter: 2006Q1

REPORT INFORMATION
  Report Type: 
  Country: None (occurrence: None)
  Receive Date: 20060314
  Receipt Date: 20051017
  Transmission Date: 20060701
  Serious: Yes (Other)
  Sender: FDA-Public Use
  Company Number: DE-SANOFI-SYNTHELABO-F01200502158

PATIENT
  Sex: Male

DRUGS (7)
  1. OXALIPLATIN [Suspect]
     Indication: COLON CANCER
     Route: 042
  2. FLUOROURACIL [Suspect]
     Indication: COLON CANCER
     Dosage: 800/1200 MG Q2W
     Route: 042
  3. LEUCOVORIN CALCIUM [Suspect]
     Indication: COLON CANCER
     Route: 042
  4. BEVACIZUMAB [Suspect]
     Route: 042
  5. FORTECORTIN [Concomitant]
     Dates: start: 20050517
  6. KEVATRIL [Concomitant]
     Dates: start: 20050517
  7. ENOXAPARIN SODIUM [Concomitant]
     Dates: start: 20050505

REACTIONS (1)
  - HYPERTRIGLYCERIDAEMIA [None]
